FAERS Safety Report 9991499 (Version 1)
Quarter: 2014Q1

REPORT INFORMATION
  Report Type: Spontaneous
  Country: US (occurrence: None)
  Receive Date: 20140123
  Receipt Date: 20140123
  Transmission Date: 20141002
  Serious: Yes (Hospitalization)
  Sender: FDA-Public Use
  Company Number: UTC-040979

PATIENT
  Age: 69 Year
  Sex: Female
  Weight: 65.5 kg

DRUGS (4)
  1. REMODULIN [Suspect]
     Indication: PULMONARY ARTERIAL HYPERTENSION
     Dosage: (0.072 UG/KG, 1 IN 1 MIN)
     Route: 041
     Dates: start: 20110112
  2. REMODULIN [Suspect]
     Indication: PULMONARY ARTERIAL HYPERTENSION
     Dosage: (0.072 UG/KG, 1 IN 1 MIN)
     Route: 041
     Dates: start: 20110112
  3. VIAGRA (SILDENAFIL) [Concomitant]
  4. TRACLEER (BOSENTAN) [Concomitant]

REACTIONS (1)
  - Haemorrhage [None]
